FAERS Safety Report 11464646 (Version 2)
Quarter: 2015Q3

REPORT INFORMATION
  Report Type: Spontaneous
  Country: CN (occurrence: CN)
  Receive Date: 20150906
  Receipt Date: 20150909
  Transmission Date: 20151125
  Serious: Yes (Other)
  Sender: FDA-Public Use
  Company Number: CN-BRISTOL-MYERS SQUIBB COMPANY-BMS-2015-058053

PATIENT
  Age: 45 Year
  Sex: Male

DRUGS (1)
  1. BARACLUDE [Suspect]
     Active Substance: ENTECAVIR
     Indication: HEPATITIS B
     Dosage: 1 MG, QD
     Route: 048

REACTIONS (2)
  - Haemodialysis [Unknown]
  - Nephropathy [Unknown]

NARRATIVE: CASE EVENT DATE: 201410
